FAERS Safety Report 9672294 (Version 1)
Quarter: 2013Q4

REPORT INFORMATION
  Report Type: Spontaneous
  Country: FR (occurrence: FR)
  Receive Date: 20131106
  Receipt Date: 20131106
  Transmission Date: 20140711
  Serious: Yes (Death, Other)
  Sender: FDA-Public Use
  Company Number: FR-CELGENEUS-056-20785-13104706

PATIENT
  Sex: 0

DRUGS (1)
  1. THALIDOMIDE [Suspect]
     Indication: PRODUCT USED FOR UNKNOWN INDICATION
     Route: 048
     Dates: end: 20120115

REACTIONS (41)
  - Myocardial infarction [Fatal]
  - Cardiac arrest [Fatal]
  - Haematological malignancy [Unknown]
  - Uterine cancer [Unknown]
  - Skin cancer [Unknown]
  - Nonspecific reaction [Unknown]
  - Blood disorder [Unknown]
  - Nervous system disorder [Unknown]
  - Gastrointestinal disorder [Unknown]
  - Renal disorder [Unknown]
  - Hepatobiliary disease [Unknown]
  - Mental disorder [Unknown]
  - Musculoskeletal disorder [Unknown]
  - Endocrine disorder [Unknown]
  - Metabolic disorder [Unknown]
  - Immune system disorder [Unknown]
  - Eye disorder [Unknown]
  - Ear disorder [Unknown]
  - Reproductive tract disorder [Unknown]
  - Agranulocytosis [Unknown]
  - Thrombocytopenia [Unknown]
  - Pancytopenia [Unknown]
  - Anaemia [Unknown]
  - Pulmonary embolism [Unknown]
  - Deep vein thrombosis [Unknown]
  - Neuropathy peripheral [Unknown]
  - Infection [Unknown]
  - Toxic epidermal necrolysis [Recovered/Resolved]
  - Pemphigoid [Recovered/Resolved]
  - Drug reaction with eosinophilia and systemic symptoms [Recovering/Resolving]
  - Dyspnoea [Unknown]
  - Pulmonary arterial hypertension [Unknown]
  - Constipation [Unknown]
  - Bradycardia [Unknown]
  - Cardiac failure [Unknown]
  - Angina pectoris [Unknown]
  - Ventricular extrasystoles [Unknown]
  - Acute coronary syndrome [Unknown]
  - Atrial flutter [Unknown]
  - Arrhythmia supraventricular [Unknown]
  - Supraventricular extrasystoles [Unknown]
